FAERS Safety Report 8098894-4 (Version None)
Quarter: 2012Q1

REPORT INFORMATION
  Report Type: 
  Country: None (occurrence: None)
  Receive Date: 20120129
  Receipt Date: 20110923
  Transmission Date: 20120608
  Serious: No
  Sender: FDA-Public Use
  Company Number: US-ABBOTT-11P-163-0857853-00

PATIENT
  Age: 71 Year
  Sex: Male

DRUGS (4)
  1. HUMIRA [Suspect]
     Indication: PSORIATIC ARTHROPATHY
     Dates: start: 20100201, end: 20110201
  2. HUMIRA [Suspect]
     Indication: PSORIASIS
  3. METHOTREXATE [Concomitant]
     Indication: PSORIASIS
     Route: 050
  4. ADVAIR DISKUS 100/50 [Concomitant]
     Indication: ASTHMA

REACTIONS (2)
  - UPPER RESPIRATORY TRACT INFECTION [None]
  - PSORIASIS [None]
